FAERS Safety Report 15826517 (Version 2)
Quarter: 2019Q2

REPORT INFORMATION
  Report Type: Report from Study
  Country: US (occurrence: US)
  Receive Date: 20190115
  Receipt Date: 20190412
  Transmission Date: 20190711
  Serious: Yes (Hospitalization)
  Sender: FDA-Public Use
  Company Number: PHEH2019US002037

PATIENT
  Sex: Male

DRUGS (1)
  1. ENTRESTO [Suspect]
     Active Substance: SACUBITRIL\VALSARTAN
     Indication: PRODUCT USED FOR UNKNOWN INDICATION
     Dosage: UNK
     Route: 048

REACTIONS (11)
  - Ejection fraction decreased [Unknown]
  - Arthropod bite [Unknown]
  - Myocardial infarction [Unknown]
  - Immune system disorder [Unknown]
  - Oxygen saturation decreased [Unknown]
  - Hypotension [Unknown]
  - Urticaria [Unknown]
  - Food allergy [Unknown]
  - Anaphylactic shock [Unknown]
  - Rash [Unknown]
  - Viral infection [Unknown]
